FAERS Safety Report 17101151 (Version 2)
Quarter: 2019Q4

REPORT INFORMATION
  Report Type: Spontaneous
  Country: JP (occurrence: JP)
  Receive Date: 20191202
  Receipt Date: 20191220
  Transmission Date: 20200122
  Serious: Yes (Hospitalization)
  Sender: FDA-Public Use
  Company Number: JP-GUERBET-JP-20190222

PATIENT
  Age: 77 Year
  Sex: Male
  Weight: 62 kg

DRUGS (3)
  1. LIPIODOL [Suspect]
     Active Substance: ETHIODIZED OIL
     Indication: TRANSCATHETER ARTERIAL CHEMOEMBOLISATION
     Route: 013
  2. MIRIPLATIN HYDRATE [Concomitant]
     Indication: TRANSCATHETER ARTERIAL CHEMOEMBOLISATION
     Route: 013
  3. GELPART [Concomitant]
     Active Substance: GELATIN
     Indication: TRANSCATHETER ARTERIAL CHEMOEMBOLISATION
     Route: 013

REACTIONS (2)
  - Metastases to lymph nodes [Recovered/Resolved]
  - Product use in unapproved indication [Recovered/Resolved]
